FAERS Safety Report 8926270 (Version 1)
Quarter: 2012Q4

REPORT INFORMATION
  Report Type: 
  Country: CA (occurrence: CA)
  Receive Date: 20121126
  Receipt Date: 20121126
  Transmission Date: 20130627
  Serious: Yes (Disabling)
  Sender: FDA-Public Use
  Company Number: CA-ASTRAZENECA-2012SE86227

PATIENT
  Age: 39 Year
  Sex: Female
  Weight: 84.8 kg

DRUGS (5)
  1. SEROQUEL [Suspect]
     Route: 048
  2. CARBOLITHIUM [Suspect]
     Route: 048
  3. PMS-CITALOPRAM [Suspect]
     Route: 048
  4. TRIFLUOPERAZINE [Suspect]
     Route: 048
  5. HYDROXYZINE [Concomitant]

REACTIONS (1)
  - Blood cholesterol [Not Recovered/Not Resolved]
